FAERS Safety Report 9849208 (Version 1)
Quarter: 2013Q4

REPORT INFORMATION
  Report Type: Spontaneous
  Country: US (occurrence: None)
  Receive Date: 20131223
  Receipt Date: 20131223
  Transmission Date: 20140711
  Serious: Yes (Other)
  Sender: FDA-Public Use
  Company Number: CABO-13003708

PATIENT
  Age: 63 Year
  Sex: Female

DRUGS (7)
  1. COMETRIQ (CABOZANTINIB) CAPSULE [Suspect]
     Indication: THYROID CANCER
     Route: 048
     Dates: start: 20130807
  2. SYNTHROID (LEVOTHYROXINE SODIUM) [Concomitant]
  3. CALCITRIOL (CALCITRIOL) (CALCITRIOL) [Concomitant]
  4. CALCIUM (CALCIUM) [Concomitant]
  5. ASPIRIN (ACETYLSALICYLIC ACID) [Concomitant]
  6. C;RESTOR (ROSUVASTATIN CALCIUM) [Concomitant]
  7. ESTRACE (ESTRADIOL) [Concomitant]

REACTIONS (5)
  - Flushing [None]
  - Erythema [None]
  - Oedema peripheral [None]
  - Dysgeusia [None]
  - Decreased appetite [None]
